FAERS Safety Report 9244292 (Version 1)
Quarter: 2013Q1

REPORT INFORMATION
  Report Type: Spontaneous
  Country: US (occurrence: None)
  Receive Date: 20121123
  Receipt Date: 20121123
  Transmission Date: 20140127
  Serious: Yes (Hospitalization)
  Sender: FDA-Public Use
  Company Number: 361392

PATIENT
  Sex: Male

DRUGS (3)
  1. VICTOZA (LIRAGLUTIDE) SOLUTION FOR INJECTION, 6MG/ML [Suspect]
     Indication: DIABETES MELLITUS
     Route: 058
     Dates: end: 201209
  2. METFORMIN (METFORMIN) [Concomitant]
  3. GLIMEPIRIDE (GLIMEPIRIMIDE) [Concomitant]

REACTIONS (1)
  - Pancreatitis [None]
